FAERS Safety Report 21210326 (Version 1)
Quarter: 2022Q3

REPORT INFORMATION
  Report Type: Spontaneous
  Country: US (occurrence: US)
  Receive Date: 20220814
  Receipt Date: 20220814
  Transmission Date: 20221027
  Serious: No
  Sender: FDA-Public Use
  Company Number: US-009507513-2207USA006689

PATIENT
  Age: 60 Year
  Sex: Male

DRUGS (8)
  1. CANCIDAS [Suspect]
     Active Substance: CASPOFUNGIN ACETATE
     Indication: Fungaemia
     Dosage: 50 MILLIGRAM PER DAY, FOR 14 DAYS
     Route: 042
  2. CANCIDAS [Suspect]
     Active Substance: CASPOFUNGIN ACETATE
     Indication: Aureobasidium pullulans infection
     Dosage: 50 MILLIGRAM PER DAY
  3. NOXAFIL [Suspect]
     Active Substance: POSACONAZOLE
     Indication: Fungaemia
     Dosage: 300 MILLIGRAM PER DAY
     Route: 048
  4. NOXAFIL [Suspect]
     Active Substance: POSACONAZOLE
     Indication: Aureobasidium pullulans infection
  5. MILRINONE [Concomitant]
     Active Substance: MILRINONE
     Indication: Cardiac failure
     Dosage: UNK
     Route: 042
  6. VANCOMYCIN [Concomitant]
     Active Substance: VANCOMYCIN
     Indication: Evidence based treatment
     Dosage: FOR 3 DAYS
  7. CEFEPIME [Concomitant]
     Active Substance: CEFEPIME HYDROCHLORIDE
     Indication: Evidence based treatment
     Dosage: FOR 3 DAYS
  8. ACETAMINOPHEN [Concomitant]
     Active Substance: ACETAMINOPHEN
     Indication: Pyrexia
     Dosage: UNK

REACTIONS (1)
  - Off label use [Unknown]
